FAERS Safety Report 22080937 (Version 1)
Quarter: 2023Q1

REPORT INFORMATION
  Report Type: Report from Study
  Country: US (occurrence: US)
  Receive Date: 20230309
  Receipt Date: 20230309
  Transmission Date: 20230417
  Serious: Yes (Hospitalization)
  Sender: FDA-Public Use
  Company Number: US-JNJFOC-20230236862

PATIENT
  Age: 61 Year
  Sex: Female
  Weight: 50 kg

DRUGS (12)
  1. TECLISTAMAB [Suspect]
     Active Substance: TECLISTAMAB
     Indication: Plasma cell myeloma refractory
     Dosage: FIRST PRIMING DOSE
     Route: 058
     Dates: start: 20230118
  2. TECLISTAMAB [Suspect]
     Active Substance: TECLISTAMAB
     Dosage: SECOND PRIMING DOSE
     Route: 058
     Dates: start: 20230120
  3. TECLISTAMAB [Suspect]
     Active Substance: TECLISTAMAB
     Dosage: C1D1 DOSE
     Route: 058
     Dates: start: 20230124
  4. TECLISTAMAB [Suspect]
     Active Substance: TECLISTAMAB
     Dosage: MOST RECENT DOSE; MED KIT NO 709862
     Route: 058
     Dates: start: 20230207
  5. ACYCLOVIR [Concomitant]
     Active Substance: ACYCLOVIR
     Route: 048
  6. BENZONATATE [Concomitant]
     Active Substance: BENZONATATE
     Route: 048
  7. MELATONIN [Concomitant]
     Active Substance: MELATONIN
     Route: 048
  8. ONDANSETRON [Concomitant]
     Active Substance: ONDANSETRON
     Indication: Prophylaxis of nausea and vomiting
     Route: 048
  9. SULFAMETHOXAZOLE\TRIMETHOPRIM [Concomitant]
     Active Substance: SULFAMETHOXAZOLE\TRIMETHOPRIM
     Dosage: 800-160 MG
  10. VITAMIN A, PLAIN [Concomitant]
     Route: 048
  11. ERGOCALCIFEROL [Concomitant]
     Active Substance: ERGOCALCIFEROL
     Route: 048
  12. VITAMIN K [Concomitant]
     Active Substance: PHYTONADIONE
     Route: 048

REACTIONS (2)
  - Adenovirus infection [Not Recovered/Not Resolved]
  - Hyponatraemia [Not Recovered/Not Resolved]

NARRATIVE: CASE EVENT DATE: 20230212
